FAERS Safety Report 16376226 (Version 1)
Quarter: 2019Q2

REPORT INFORMATION
  Report Type: Spontaneous
  Country: NL (occurrence: NL)
  Receive Date: 20190531
  Receipt Date: 20190531
  Transmission Date: 20190711
  Serious: Yes (Other)
  Sender: FDA-Public Use
  Company Number: NL-AUROBINDO-AUR-APL-2019-004847

PATIENT

DRUGS (4)
  1. VINBLASTINE [Suspect]
     Active Substance: VINBLASTINE
     Indication: LANGERHANS^ CELL HISTIOCYTOSIS
  2. PREDNISONE. [Suspect]
     Active Substance: PREDNISONE
     Indication: SECONDARY HYPOGONADISM
     Dosage: UNK
     Route: 065
     Dates: start: 2014
  3. VINBLASTINE [Suspect]
     Active Substance: VINBLASTINE
     Indication: SECONDARY HYPOGONADISM
     Dosage: UNK
     Route: 065
     Dates: start: 2014
  4. DESMOPRESSIN [Suspect]
     Active Substance: DESMOPRESSIN
     Indication: DIABETES INSIPIDUS
     Dosage: UNK
     Route: 065

REACTIONS (6)
  - Secondary hypogonadism [Unknown]
  - Pyrexia [Unknown]
  - Neurotoxicity [Unknown]
  - Bone lesion [Recovered/Resolved]
  - Bone pain [Unknown]
  - Langerhans^ cell histiocytosis [Unknown]

NARRATIVE: CASE EVENT DATE: 2014
